FAERS Safety Report 17092160 (Version 1)
Quarter: 2019Q4

REPORT INFORMATION
  Report Type: Spontaneous
  Country: US (occurrence: US)
  Receive Date: 20191129
  Receipt Date: 20191129
  Transmission Date: 20200122
  Serious: No
  Sender: FDA-Public Use
  Company Number: US-UCBSA-2018012950

PATIENT
  Age: 36 Year
  Sex: Female
  Weight: 61.2 kg

DRUGS (1)
  1. CIMZIA [Suspect]
     Active Substance: CERTOLIZUMAB PEGOL
     Indication: SACROILIITIS
     Dosage: 2 SHOTS, MONTHLY (QM)
     Dates: start: 20170921, end: 201710

REACTIONS (1)
  - Maternal exposure before pregnancy [Unknown]

NARRATIVE: CASE EVENT DATE: 20171105
